FAERS Safety Report 24624655 (Version 1)
Quarter: 2024Q4

REPORT INFORMATION
  Report Type: Spontaneous
  Country: US (occurrence: None)
  Receive Date: 20241115
  Receipt Date: 20241115
  Transmission Date: 20250115
  Serious: No
  Sender: Public
  Company Number: None

PATIENT
  Age: 87 Year
  Sex: Male
  Weight: 88 kg

DRUGS (2)
  1. SPIRONOLACTONE [Suspect]
     Active Substance: SPIRONOLACTONE
     Indication: Hypertension
     Dosage: FREQUENCY : DAILY;?
     Route: 048
  2. LISINOPRIL [Suspect]
     Active Substance: LISINOPRIL
     Indication: Hypertension
     Dosage: FREQUENCY : DAILY;?
     Route: 048
     Dates: end: 20240919

REACTIONS (3)
  - Hyperkalaemia [None]
  - Asthenia [None]
  - Metabolic acidosis [None]

NARRATIVE: CASE EVENT DATE: 20240919
